FAERS Safety Report 22292704 (Version 1)
Quarter: 2023Q2

REPORT INFORMATION
  Report Type: Report from Study
  Country: CZ (occurrence: CZ)
  Receive Date: 20230508
  Receipt Date: 20230508
  Transmission Date: 20230722
  Serious: Yes (Hospitalization)
  Sender: FDA-Public Use
  Company Number: CZ-ABBVIE-4753460

PATIENT
  Age: 17 Year
  Sex: Male

DRUGS (1)
  1. HUMIRA [Suspect]
     Active Substance: ADALIMUMAB
     Indication: Crohn^s disease
     Route: 058

REACTIONS (5)
  - Rectal stenosis [Unknown]
  - Large intestinal obstruction [Unknown]
  - Crohn^s disease [Not Recovered/Not Resolved]
  - Perirectal abscess [Unknown]
  - Genital abscess [Unknown]

NARRATIVE: CASE EVENT DATE: 20230403
